FAERS Safety Report 9224439 (Version 1)
Quarter: 2013Q2

REPORT INFORMATION
  Report Type: Spontaneous
  Country: IT (occurrence: IT)
  Receive Date: 20130411
  Receipt Date: 20130411
  Transmission Date: 20140414
  Serious: Yes (Hospitalization)
  Sender: FDA-Public Use
  Company Number: IT-BAYER-2013-045453

PATIENT
  Age: 82 Year
  Sex: Male
  Weight: 54.88 kg

DRUGS (3)
  1. CARDIOASPIRIN [Suspect]
     Indication: PROPHYLAXIS
     Dosage: 100 MG, QD
     Route: 048
     Dates: start: 20100101, end: 20130327
  2. NORMIX [Concomitant]
     Indication: DIVERTICULUM INTESTINAL
  3. LAROXYL [Concomitant]
     Indication: TENSION HEADACHE
     Dosage: DAILY DOSE 5 GTT
     Route: 048

REACTIONS (3)
  - Cerebral haemorrhage [Recovering/Resolving]
  - Aphasia [Recovering/Resolving]
  - Hemiparesis [Recovering/Resolving]
